FAERS Safety Report 7138234-8 (Version None)
Quarter: 2010Q4

REPORT INFORMATION
  Report Type: 
  Country: None (occurrence: None)
  Receive Date: 20101103
  Receipt Date: 20100507
  Transmission Date: 20110411
  Serious: Yes (Hospitalization)
  Sender: FDA-Public Use
  Company Number: US-WYE-H15059910

PATIENT
  Age: 40 Year
  Sex: Female
  Weight: 54.48 kg

DRUGS (7)
  1. EFFEXOR XR [Suspect]
     Indication: BIPOLAR I DISORDER
     Dosage: 225 MG 1X PER 1 DAY, ORAL
     Route: 048
     Dates: start: 20100201
  2. EFFEXOR XR [Suspect]
     Indication: BORDERLINE PERSONALITY DISORDER
     Dosage: 225 MG 1X PER 1 DAY, ORAL
     Route: 048
     Dates: start: 20100201
  3. EFFEXOR XR [Suspect]
     Indication: DEPRESSION
     Dosage: 225 MG 1X PER 1 DAY, ORAL
     Route: 048
     Dates: start: 20100201
  4. PROZAC [Concomitant]
  5. DEPAKOTE [Concomitant]
  6. ATIVAN [Concomitant]
  7. SEROQUEL (QUETIAPINE) [Concomitant]

REACTIONS (2)
  - CONVULSION [None]
  - DRUG SCREEN POSITIVE [None]
